FAERS Safety Report 12431237 (Version 1)
Quarter: 2016Q2

REPORT INFORMATION
  Report Type: Report from Study
  Country: IT (occurrence: IT)
  Receive Date: 20160603
  Receipt Date: 20160603
  Transmission Date: 20160815
  Serious: Yes (Other)
  Sender: FDA-Public Use
  Company Number: IT-ROCHE-1766553

PATIENT

DRUGS (6)
  1. DEFERASIROX [Concomitant]
     Active Substance: DEFERASIROX
  2. PEGINTERFERON ALFA-2B [Suspect]
     Active Substance: PEGINTERFERON ALFA-2B
     Indication: CHRONIC HEPATITIS C
     Route: 065
  3. PEG-INTERFERON ALFA 2A [Suspect]
     Active Substance: PEGINTERFERON ALFA-2A
     Indication: CHRONIC HEPATITIS C
     Route: 065
  4. RIBAVIRIN. [Suspect]
     Active Substance: RIBAVIRIN
     Indication: CHRONIC HEPATITIS C
     Route: 065
  5. DEFERIPRONE [Concomitant]
     Active Substance: DEFERIPRONE
  6. DEFEROXAMINE [Concomitant]
     Active Substance: DEFEROXAMINE\DEFEROXAMINE MESYLATE

REACTIONS (17)
  - Neutropenia [Unknown]
  - Hepatic failure [Unknown]
  - Hepatitis [Unknown]
  - Thrombocytopenia [Unknown]
  - Drug intolerance [Unknown]
  - Alanine aminotransferase increased [Unknown]
  - Cardiac failure [Unknown]
  - Leukopenia [Unknown]
  - Fatigue [Unknown]
  - Asthenia [Unknown]
  - Anal abscess [Unknown]
  - Sepsis [Unknown]
  - Urinary tract infection [Unknown]
  - Paraesthesia [Unknown]
  - Autoimmune haemolytic anaemia [Unknown]
  - Pneumonia [Unknown]
  - Influenza like illness [Unknown]
